FAERS Safety Report 9507325 (Version 2)
Quarter: 2013Q3

REPORT INFORMATION
  Report Type: Spontaneous
  Country: GB (occurrence: GB)
  Receive Date: 20130909
  Receipt Date: 20130912
  Transmission Date: 20140515
  Serious: Yes (Other)
  Sender: FDA-Public Use
  Company Number: GB-PFIZER INC-2013256538

PATIENT
  Sex: Male

DRUGS (1)
  1. SOLU-MEDRONE [Suspect]
     Dosage: UNK

REACTIONS (1)
  - Meningitis fungal [Recovering/Resolving]
